FAERS Safety Report 17940292 (Version 1)
Quarter: 2020Q2

REPORT INFORMATION
  Report Type: Spontaneous
  Country: US (occurrence: US)
  Receive Date: 20200625
  Receipt Date: 20200625
  Transmission Date: 20200714
  Serious: Yes (Death, Disabling, Other)
  Sender: FDA-Public Use
  Company Number: US-SA-2020SA159631

PATIENT

DRUGS (1)
  1. ZANTAC 75 [Suspect]
     Active Substance: RANITIDINE HYDROCHLORIDE

REACTIONS (8)
  - Impaired quality of life [Unknown]
  - Disability [Unknown]
  - Deformity [Unknown]
  - Anxiety [Unknown]
  - Injury [Unknown]
  - Impaired work ability [Unknown]
  - Gastric cancer [Fatal]
  - Pain [Unknown]

NARRATIVE: CASE EVENT DATE: 20190618
